FAERS Safety Report 8439153-7 (Version None)
Quarter: 2012Q2

REPORT INFORMATION
  Report Type: 
  Country: None (occurrence: None)
  Receive Date: 20120615
  Receipt Date: 20120612
  Transmission Date: 20120825
  Serious: No
  Sender: FDA-Public Use
  Company Number: US-BAYER-2012-059102

PATIENT

DRUGS (8)
  1. IBUPROFEN (ADVIL) [Concomitant]
  2. ACETAMINOPHEN [Concomitant]
  3. DHE [DIHYDROERGOTAMINE MESILATE] [Concomitant]
  4. BENADRYL [Concomitant]
  5. ALEVE (CAPLET) [Suspect]
     Indication: HEADACHE
  6. UNSPECIFIED NARCOTICS [Concomitant]
  7. ZOFRAN [Concomitant]
  8. TORADOL [Concomitant]

REACTIONS (1)
  - PAIN [None]
